FAERS Safety Report 4698381-7 (Version None)
Quarter: 2005Q2

REPORT INFORMATION
  Report Type: 
  Country: None (occurrence: None)
  Receive Date: 20050623
  Receipt Date: 20050615
  Transmission Date: 20051028
  Serious: Yes (Other)
  Sender: FDA-Public Use
  Company Number: US-ROCHE-408062

PATIENT
  Age: 46 Year
  Sex: Female

DRUGS (2)
  1. PEGASYS [Suspect]
     Dosage: ROUTE REPORTED AS INJECTION.
     Route: 050
     Dates: end: 20030615
  2. COPEGUS [Suspect]
     Route: 048
     Dates: end: 20030615

REACTIONS (2)
  - HEPATIC ENZYME INCREASED [None]
  - MULTIPLE SCLEROSIS [None]
